FAERS Safety Report 18420458 (Version 1)
Quarter: 2020Q4

REPORT INFORMATION
  Report Type: Spontaneous
  Country: US (occurrence: US)
  Receive Date: 20201023
  Receipt Date: 20201023
  Transmission Date: 20210114
  Serious: Yes (Disabling)
  Sender: FDA-Public Use
  Company Number: None

PATIENT
  Age: 63 Year
  Sex: Female
  Weight: 105.75 kg

DRUGS (7)
  1. SYNJARDY [Concomitant]
     Active Substance: EMPAGLIFLOZIN\METFORMIN HYDROCHLORIDE
  2. TRAZODONE [Suspect]
     Active Substance: TRAZODONE HYDROCHLORIDE
     Dosage: ?          QUANTITY:2 TABLET(S);?
     Route: 048
  3. LAMICTAL [Concomitant]
     Active Substance: LAMOTRIGINE
  4. COREG [Concomitant]
     Active Substance: CARVEDILOL
  5. PRAVASTATIN. [Concomitant]
     Active Substance: PRAVASTATIN
  6. EDARBI [Concomitant]
     Active Substance: AZILSARTAN KAMEDOXOMIL
  7. TRAZODONE [Concomitant]
     Active Substance: TRAZODONE HYDROCHLORIDE

REACTIONS (7)
  - Withdrawal syndrome [None]
  - Tremor [None]
  - Product physical issue [None]
  - Illness [None]
  - Depression [None]
  - Product odour abnormal [None]
  - Hyperhidrosis [None]

NARRATIVE: CASE EVENT DATE: 20200406
